FAERS Safety Report 14588793 (Version 1)
Quarter: 2018Q1

REPORT INFORMATION
  Report Type: Spontaneous
  Country: IL (occurrence: IL)
  Receive Date: 20180301
  Receipt Date: 20180301
  Transmission Date: 20180509
  Serious: Yes (Other)
  Sender: FDA-Public Use
  Company Number: IL-IMPAX LABORATORIES, INC-2018-IPXL-00499

PATIENT
  Age: 45 Year
  Sex: Female

DRUGS (6)
  1. HYDROXYCHLOROQUINE [Suspect]
     Active Substance: HYDROXYCHLOROQUINE
     Indication: Q FEVER
     Dosage: UNK
     Route: 065
     Dates: start: 20141221, end: 201701
  2. DOXYCYCLINE HYCLATE DELAYED RELEASE [Suspect]
     Active Substance: DOXYCYCLINE HYCLATE
     Dosage: UNK
     Route: 065
     Dates: start: 20141228, end: 201701
  3. DOXYCYCLINE HYCLATE DELAYED RELEASE [Suspect]
     Active Substance: DOXYCYCLINE HYCLATE
     Dosage: SLOW IV PUSHES IN ESCALATING CONCENTARTIONS
     Route: 042
     Dates: start: 20141228, end: 20141228
  4. DOXYCYCLINE HYCLATE DELAYED RELEASE [Suspect]
     Active Substance: DOXYCYCLINE HYCLATE
     Dosage: 100 MG,  240 MIN AFTER STARTING ESCALATING DOSE OF IV PUSHES FOR DESENSITIZATION
     Route: 048
     Dates: start: 20141228, end: 20141228
  5. TRIMETHOPRIM/SULFAMETHOXAZOLE [Suspect]
     Active Substance: SULFAMETHOXAZOLE\TRIMETHOPRIM
     Indication: Q FEVER
     Dosage: UNK
     Route: 065
     Dates: start: 20141221, end: 201701
  6. DOXYCYCLINE HYCLATE DELAYED RELEASE [Suspect]
     Active Substance: DOXYCYCLINE HYCLATE
     Indication: Q FEVER
     Dosage: UNK
     Route: 065
     Dates: start: 20140829, end: 20140830

REACTIONS (2)
  - Type I hypersensitivity [Recovered/Resolved]
  - Nausea [Unknown]

NARRATIVE: CASE EVENT DATE: 20140829
